FAERS Safety Report 20425671 (Version 1)
Quarter: 2022Q1

REPORT INFORMATION
  Report Type: Spontaneous
  Country: US (occurrence: US)
  Receive Date: 20220204
  Receipt Date: 20220204
  Transmission Date: 20220423
  Serious: No
  Sender: FDA-Public Use
  Company Number: US-BIOVITRUM-2022US01337

PATIENT
  Sex: Male
  Weight: 7 kg

DRUGS (5)
  1. SYNAGIS [Suspect]
     Active Substance: PALIVIZUMAB
     Indication: Premature baby
     Route: 030
  2. BENADRYL [Concomitant]
     Active Substance: DIPHENHYDRAMINE HYDROCHLORIDE
  3. SYNAGIS [Suspect]
     Active Substance: PALIVIZUMAB
     Indication: Neonatal tachypnoea
  4. SYNAGIS [Suspect]
     Active Substance: PALIVIZUMAB
     Indication: Respiratory distress
  5. SYNAGIS [Suspect]
     Active Substance: PALIVIZUMAB
     Indication: Persistent foetal circulation

REACTIONS (5)
  - Cough [Unknown]
  - Rhinorrhoea [Unknown]
  - Illness [Unknown]
  - Vomiting [Unknown]
  - Inappropriate schedule of product administration [Unknown]
